FAERS Safety Report 9969290 (Version 1)
Quarter: 2014Q1

REPORT INFORMATION
  Report Type: Spontaneous
  Country: US (occurrence: US)
  Receive Date: 20140306
  Receipt Date: 20140306
  Transmission Date: 20141002
  Serious: No
  Sender: FDA-Public Use
  Company Number: US-BIOGENIDEC-2014BI018296

PATIENT
  Age: 56 Year
  Sex: Female

DRUGS (14)
  1. TECFIDERA [Suspect]
     Indication: MULTIPLE SCLEROSIS
     Route: 048
  2. AMPYRA [Concomitant]
  3. ABILIFY [Concomitant]
  4. CYMBALTA [Concomitant]
  5. ESTRADIOL [Concomitant]
  6. HYDROCODONE.ACETAMINOPHEN [Concomitant]
  7. LORAZEPAM [Concomitant]
  8. LYRICA [Concomitant]
  9. MYRBETRIQ [Concomitant]
  10. NORCO [Concomitant]
  11. ONDANSETRON [Concomitant]
  12. PRISTIQ [Concomitant]
  13. TRAZODONE HCL [Concomitant]
  14. VITAMIN D-3 [Concomitant]

REACTIONS (3)
  - Cystitis [Unknown]
  - Nausea [Unknown]
  - Vomiting [Unknown]
